FAERS Safety Report 16084779 (Version 1)
Quarter: 2019Q1

REPORT INFORMATION
  Report Type: Spontaneous
  Country: US (occurrence: US)
  Receive Date: 20190318
  Receipt Date: 20190318
  Transmission Date: 20190418
  Serious: No
  Sender: FDA-Public Use
  Company Number: US-AVADEL SPECIALTY PHARMACEUTICALS, LLC-2019AVA00063

PATIENT
  Age: 72 Year
  Sex: Male
  Weight: 98.64 kg

DRUGS (11)
  1. VENTOLIN HFA [Concomitant]
     Active Substance: ALBUTEROL SULFATE
  2. SALINE SPRAY [Concomitant]
     Active Substance: SODIUM CHLORIDE
     Route: 045
  3. UNSPECIFIED DECONGESTANT SPRAY [Concomitant]
     Route: 045
  4. MUCUS RELIEF [Concomitant]
     Active Substance: GUAIFENESIN
  5. ALBUTEROL SULFATE. [Concomitant]
     Active Substance: ALBUTEROL SULFATE
  6. MONTELUKAST [Concomitant]
     Active Substance: MONTELUKAST SODIUM
  7. NOCTIVA [Suspect]
     Active Substance: DESMOPRESSIN ACETATE
     Indication: NOCTURIA
     Dosage: 1.66 ?G, 1X/DAY 30 MINUTES BEFORE BEDTIME
     Route: 045
     Dates: start: 20190205, end: 20190214
  8. METFORMIN [Concomitant]
     Active Substance: METFORMIN HYDROCHLORIDE
  9. PREDNISONE. [Concomitant]
     Active Substance: PREDNISONE
  10. DULERA [Concomitant]
     Active Substance: FORMOTEROL FUMARATE DIHYDRATE\MOMETASONE FUROATE
  11. SPIRIVA RESPIMAT [Concomitant]
     Active Substance: TIOTROPIUM BROMIDE

REACTIONS (6)
  - Nocturia [Not Recovered/Not Resolved]
  - Micturition urgency [Recovering/Resolving]
  - Drug ineffective [Recovered/Resolved]
  - Thirst [Recovering/Resolving]
  - Dry mouth [Recovering/Resolving]
  - Product storage error [Recovered/Resolved]

NARRATIVE: CASE EVENT DATE: 201902
